FAERS Safety Report 25853221 (Version 1)
Quarter: 2025Q3

REPORT INFORMATION
  Report Type: Spontaneous
  Country: US (occurrence: US)
  Receive Date: 20250926
  Receipt Date: 20250926
  Transmission Date: 20251021
  Serious: No
  Sender: RIGEL PHARMACEUTICALS
  Company Number: US-RIGEL Pharmaceuticals, INC-20250600138

PATIENT
  Sex: Male
  Weight: 79.102 kg

DRUGS (3)
  1. REZLIDHIA [Suspect]
     Active Substance: OLUTASIDENIB
     Indication: Acute leukaemia
     Dosage: 150 MG, EVERY DAY
     Route: 048
     Dates: start: 2019
  2. REZLIDHIA [Suspect]
     Active Substance: OLUTASIDENIB
     Dosage: 150 MG, EVERY OTHER DAY
     Route: 048
     Dates: start: 202505
  3. REZLIDHIA [Suspect]
     Active Substance: OLUTASIDENIB
     Dosage: 150 MG,QD
     Route: 048
     Dates: start: 202506

REACTIONS (5)
  - Retinal oedema [Not Recovered/Not Resolved]
  - Neuropathy peripheral [Not Recovered/Not Resolved]
  - Product dose omission issue [Unknown]
  - Off label use [Unknown]
  - Fatigue [Unknown]
